FAERS Safety Report 22127505 (Version 1)
Quarter: 2023Q1

REPORT INFORMATION
  Report Type: Spontaneous
  Country: JP (occurrence: JP)
  Receive Date: 20230322
  Receipt Date: 20230322
  Transmission Date: 20230418
  Serious: Yes (Other)
  Sender: FDA-Public Use
  Company Number: JP-SA-2023SA087699

PATIENT
  Age: 50 Year
  Sex: Male

DRUGS (1)
  1. DUPIXENT [Suspect]
     Active Substance: DUPILUMAB
     Indication: Product used for unknown indication
     Dosage: DAILY DOSE: 300
     Route: 058
     Dates: start: 202301, end: 202303

REACTIONS (3)
  - Eosinophilic granulomatosis with polyangiitis [Recovered/Resolved]
  - Hypoaesthesia [Recovered/Resolved]
  - Palpitations [Recovered/Resolved]

NARRATIVE: CASE EVENT DATE: 20230301
